FAERS Safety Report 10048682 (Version 1)
Quarter: 2014Q1

REPORT INFORMATION
  Report Type: Other
  Country: AU (occurrence: AU)
  Receive Date: 20140331
  Receipt Date: 20140331
  Transmission Date: 20141002
  Serious: Yes (Death, Other)
  Sender: FDA-Public Use
  Company Number: AU-BRISTOL-MYERS SQUIBB COMPANY-20567558

PATIENT
  Age: 61 Year
  Sex: Female

DRUGS (1)
  1. WARFARIN SODIUM [Suspect]

REACTIONS (3)
  - Cerebral infarction [Fatal]
  - Calciphylaxis [Unknown]
  - Skin necrosis [Unknown]
